FAERS Safety Report 6904977-1 (Version None)
Quarter: 2010Q3

REPORT INFORMATION
  Report Type: 
  Country: None (occurrence: None)
  Receive Date: 20100804
  Receipt Date: 20090813
  Transmission Date: 20110219
  Serious: No
  Sender: FDA-Public Use
  Company Number: US-PFIZER INC-2009219483

PATIENT
  Sex: Female
  Weight: 58.957 kg

DRUGS (4)
  1. LYRICA [Suspect]
     Indication: FIBROMYALGIA
     Dosage: 75 MG, 1X/DAY
     Dates: start: 20090519, end: 20090522
  2. LYRICA [Suspect]
     Dosage: 75 MG, 2X/DAY
     Dates: start: 20090522, end: 20090526
  3. FLEXERIL [Concomitant]
     Dosage: 10 MG, UNK
  4. IBUPROFEN [Concomitant]
     Dosage: 600 MG, UNK

REACTIONS (4)
  - HYPOAESTHESIA [None]
  - HYPOAESTHESIA ORAL [None]
  - PARAESTHESIA [None]
  - SENSATION OF HEAVINESS [None]
